FAERS Safety Report 7737838-9 (Version None)
Quarter: 2011Q3

REPORT INFORMATION
  Report Type: 
  Country: None (occurrence: None)
  Receive Date: 20110908
  Receipt Date: 20110829
  Transmission Date: 20111222
  Serious: Yes (Other)
  Sender: FDA-Public Use
  Company Number: US-SANOFI-AVENTIS-2011SA055871

PATIENT
  Age: 66 Year
  Sex: Female

DRUGS (2)
  1. SOLOSTAR [Suspect]
  2. LANTUS [Suspect]
     Dosage: DOSE:14 UNIT(S)
     Route: 065
     Dates: start: 20080101

REACTIONS (4)
  - MEMORY IMPAIRMENT [None]
  - CONTUSION [None]
  - FALL [None]
  - FACIAL BONES FRACTURE [None]
